FAERS Safety Report 21341137 (Version 1)
Quarter: 2022Q3

REPORT INFORMATION
  Report Type: Report from Study
  Country: DE (occurrence: DE)
  Receive Date: 20220916
  Receipt Date: 20220916
  Transmission Date: 20221026
  Serious: Yes (Death, Hospitalization, Other)
  Sender: FDA-Public Use
  Company Number: DE-MYLANLABS-2022M1083097

PATIENT
  Sex: Female

DRUGS (25)
  1. METHOTREXATE [Suspect]
     Active Substance: METHOTREXATE
     Indication: Rheumatoid arthritis
     Dosage: 15 MILLIGRAM, THERAPY END DATE: ASKU
     Dates: start: 20121106
  2. METHOTREXATE [Suspect]
     Active Substance: METHOTREXATE
     Dosage: 15 MILLIGRAM, THERAPY END DATE: ASKU
     Dates: start: 20130523
  3. METHOTREXATE [Suspect]
     Active Substance: METHOTREXATE
     Dosage: 7.5 MILLIGRAM, THERAPY END DATE: ASKU
     Dates: start: 20120209
  4. METHOTREXATE [Suspect]
     Active Substance: METHOTREXATE
     Dosage: 15 MILLIGRAM, THERAPY END DATE: ASKU
     Dates: start: 20131202
  5. METHOTREXATE [Suspect]
     Active Substance: METHOTREXATE
     Dosage: 10 MILLIGRAM, THERAPY END DATE: ASKU
     Dates: start: 20120510
  6. METHOTREXATE [Suspect]
     Active Substance: METHOTREXATE
     Dosage: 7.5 MILLIGRAM, THERAPY END DATE: ASKU
     Dates: start: 20111128
  7. ORENCIA [Suspect]
     Active Substance: ABATACEPT
     Indication: Rheumatoid arthritis
     Dosage: 500 MILLIGRAM, DURATION 1 YR
     Dates: start: 201201, end: 201301
  8. SULFASALAZINE [Suspect]
     Active Substance: SULFASALAZINE
     Indication: Rheumatoid arthritis
     Dosage: 1000 MILLIGRAM, THERAPY END DATE: ASKU
     Dates: start: 20160523
  9. SULFASALAZINE [Suspect]
     Active Substance: SULFASALAZINE
     Dosage: 3000 MILLIGRAM, THERAPY END DATE: ASKU
     Dates: start: 20120209
  10. SULFASALAZINE [Suspect]
     Active Substance: SULFASALAZINE
     Dosage: 1000 MILLIGRAM, THERAPY END DATE: ASKU
     Dates: start: 20141008
  11. SULFASALAZINE [Suspect]
     Active Substance: SULFASALAZINE
     Dosage: 1000 MILLIGRAM, THERAPY END DATE: ASKU
     Dates: start: 20170607
  12. SULFASALAZINE [Suspect]
     Active Substance: SULFASALAZINE
     Dosage: 1000 MILLIGRAM, THERAPY END DATE: ASKU
  13. SULFASALAZINE [Suspect]
     Active Substance: SULFASALAZINE
     Dosage: 1000 MILLIGRAM, THERAPY END DATE: ASKU
     Dates: start: 20131202
  14. SULFASALAZINE [Suspect]
     Active Substance: SULFASALAZINE
     Dosage: 3000 MILLIGRAM, THERAPY END DATE: ASKU
     Dates: start: 20130523
  15. SULFASALAZINE [Suspect]
     Active Substance: SULFASALAZINE
     Dosage: 3000 MILLIGRAM, THERAPY END DATE: ASKU
     Dates: start: 20120510
  16. SULFASALAZINE [Suspect]
     Active Substance: SULFASALAZINE
     Dosage: 1000 MILLIGRAM, THERAPY END DATE: ASKU
     Dates: start: 20170313
  17. SULFASALAZINE [Suspect]
     Active Substance: SULFASALAZINE
     Dosage: 1000 MILLIGRAM, THERAPY END DATE: ASKU
     Dates: start: 20180620
  18. SULFASALAZINE [Suspect]
     Active Substance: SULFASALAZINE
     Dosage: 1000 MILLIGRAM, THERAPY END DATE: ASKU
     Dates: start: 20171218
  19. SULFASALAZINE [Suspect]
     Active Substance: SULFASALAZINE
     Dosage: 3000 MILLIGRAM, THERAPY END DATE: ASKU
     Dates: start: 20111128
  20. SULFASALAZINE [Suspect]
     Active Substance: SULFASALAZINE
     Dosage: 1000 MILLIGRAM, THERAPY END DATE: ASKU
  21. SULFASALAZINE [Suspect]
     Active Substance: SULFASALAZINE
     Dosage: 1000 MILLIGRAM, THERAPY END DATE: ASKU
     Dates: start: 20140721
  22. SULFASALAZINE [Suspect]
     Active Substance: SULFASALAZINE
     Dosage: 1000 MILLIGRAM, THERAPY END DATE: ASKU
     Dates: start: 20190207
  23. SULFASALAZINE [Suspect]
     Active Substance: SULFASALAZINE
     Dosage: UNK, THERAPY END DATE: ASKU
     Dates: start: 20150429
  24. SULFASALAZINE [Suspect]
     Active Substance: SULFASALAZINE
     Dosage: 1000 MILLIGRAM, THERAPY END DATE: ASKU
     Dates: start: 20151119
  25. SULFASALAZINE [Suspect]
     Active Substance: SULFASALAZINE
     Dosage: 1500 MILLIGRAM, THERAPY END DATE: ASKU
     Dates: start: 20121106

REACTIONS (8)
  - Death [Fatal]
  - Peripheral ischaemia [Unknown]
  - Rheumatoid arthritis [Not Recovered/Not Resolved]
  - Decubitus ulcer [Unknown]
  - Pneumonia [Recovered/Resolved]
  - Postoperative wound infection [Unknown]
  - Leg amputation [Unknown]
  - Device dislocation [Not Recovered/Not Resolved]

NARRATIVE: CASE EVENT DATE: 20190201
